FAERS Safety Report 16459029 (Version 1)
Quarter: 2019Q2

REPORT INFORMATION
  Report Type: Spontaneous
  Country: US (occurrence: US)
  Receive Date: 20190620
  Receipt Date: 20190620
  Transmission Date: 20190711
  Serious: No
  Sender: FDA-Public Use
  Company Number: US-THERAPEUTICSMD-2019TMD01190

PATIENT
  Age: 61 Year
  Sex: Female
  Weight: 58.96 kg

DRUGS (7)
  1. IMVEXXY [Suspect]
     Active Substance: ESTRADIOL
     Dosage: 4 ?G, 2X/WEEK ABOUT 3 DAYS APART USUALLY BEFORE BEDTIME
     Route: 067
     Dates: start: 2019, end: 20190522
  2. DAILY MULTIVITAMIN [Concomitant]
     Active Substance: VITAMINS
     Dosage: UNK, 1X/DAY
  3. ASPIRIN. [Concomitant]
     Active Substance: ASPIRIN
     Dosage: 81 MG, 1X/DAY
  4. IMVEXXY [Suspect]
     Active Substance: ESTRADIOL
     Indication: VAGINAL DISORDER
     Dosage: 4 ?G, 1X/DAY USUALLY BEFORE BEDTIME
     Route: 067
     Dates: start: 201903, end: 2019
  5. SPIRONOLACTONE. [Concomitant]
     Active Substance: SPIRONOLACTONE
     Dosage: 25 MG, 1X/DAY
  6. SYNTHROID [Concomitant]
     Active Substance: LEVOTHYROXINE SODIUM
     Dosage: 75 ?G, 1X/DAY
  7. METOPROLOL. [Concomitant]
     Active Substance: METOPROLOL
     Dosage: 25 MG, 1X/DAY

REACTIONS (6)
  - Feeling jittery [Recovering/Resolving]
  - Muscle tightness [Recovering/Resolving]
  - Anxiety [Recovering/Resolving]
  - Off label use [Recovered/Resolved]
  - Myalgia [Recovering/Resolving]
  - Insomnia [Unknown]

NARRATIVE: CASE EVENT DATE: 2019
